FAERS Safety Report 5220641-1 (Version None)
Quarter: 2007Q1

REPORT INFORMATION
  Report Type: 
  Country: None (occurrence: None)
  Receive Date: 20070125
  Receipt Date: 20070125
  Transmission Date: 20070707
  Serious: Yes (Hospitalization)
  Sender: FDA-Public Use
  Company Number: None

PATIENT
  Sex: Female
  Weight: 67.1324 kg

DRUGS (2)
  1. OMNICEF [Suspect]
     Indication: BRONCHITIS
     Dosage: PO BID
     Route: 048
  2. HYDROCODONE SYRUP [Concomitant]

REACTIONS (2)
  - CHEST PAIN [None]
  - HEADACHE [None]
